FAERS Safety Report 8217906-8 (Version None)
Quarter: 2012Q1

REPORT INFORMATION
  Report Type: 
  Country: None (occurrence: None)
  Receive Date: 20120315
  Receipt Date: 20120306
  Transmission Date: 20120608
  Serious: Yes (Hospitalization, Other)
  Sender: FDA-Public Use
  Company Number: AUR-APL-2012-01128

PATIENT
  Age: 48 Year
  Sex: Male

DRUGS (8)
  1. SIMVASTATIN [Concomitant]
  2. CITALOPRAM HYDROBROMIDE [Concomitant]
  3. CLOZARIL [Suspect]
     Indication: SCHIZOPHRENIA
     Dosage: (350 MG),ORAL ; ORAL
     Route: 048
     Dates: start: 20070202
  4. CLOZARIL [Suspect]
     Indication: SCHIZOPHRENIA
     Dosage: (350 MG),ORAL ; ORAL
     Route: 048
     Dates: start: 20101110, end: 20120119
  5. VALPROIC ACID [Concomitant]
  6. OLANZAPINE [Concomitant]
  7. PIRENZEPINE (PIRENZEPINE) [Suspect]
     Indication: SALIVARY HYPERSECRETION
     Dosage: 150 MG (50 MG,3 IN 1 D),ORAL
     Route: 048
     Dates: start: 20100608, end: 20120120
  8. RISPERIDONE [Suspect]
     Indication: PRODUCT USED FOR UNKNOWN INDICATION
     Dosage: 2 MG (1 MG,2 IN 1 D),ORAL
     Route: 048
     Dates: start: 20100608, end: 20120127

REACTIONS (6)
  - THROMBOCYTOPENIA [None]
  - NEUTROPENIA [None]
  - WHITE BLOOD CELL COUNT DECREASED [None]
  - SALIVARY HYPERSECRETION [None]
  - HEPATITIS C VIRUS TEST POSITIVE [None]
  - PSYCHOTIC DISORDER [None]
